FAERS Safety Report 9847031 (Version 1)
Quarter: 2014Q1

REPORT INFORMATION
  Report Type: Spontaneous
  Country: AT (occurrence: AT)
  Receive Date: 20140127
  Receipt Date: 20140127
  Transmission Date: 20141002
  Serious: Yes (Death, Other)
  Sender: FDA-Public Use
  Company Number: AT-009507513-1401AUT009766

PATIENT
  Age: 66 Year
  Sex: Male

DRUGS (4)
  1. BCG LIVE [Suspect]
     Indication: BLADDER CANCER
     Dosage: 6 CYCLES
     Route: 065
  2. MYCOPHENOLATE MOFETIL [Concomitant]
     Indication: IMMUNOSUPPRESSANT DRUG LEVEL
  3. TACROLIMUS [Concomitant]
  4. PREDNISOLONE [Concomitant]
     Indication: IMMUNOSUPPRESSANT DRUG LEVEL

REACTIONS (5)
  - Bladder cancer recurrent [Fatal]
  - Off label use [Unknown]
  - Cyst removal [Fatal]
  - Urinary tract infection [Unknown]
  - Drug ineffective [Unknown]
